FAERS Safety Report 4365468-8 (Version None)
Quarter: 2004Q2

REPORT INFORMATION
  Report Type: 
  Country: None (occurrence: None)
  Receive Date: 20040526
  Receipt Date: 20040518
  Transmission Date: 20050107
  Serious: Yes (Death)
  Sender: FDA-Public Use
  Company Number: US-JNJFOC-20040504333

PATIENT
  Age: 68 Year
  Sex: Male

DRUGS (1)
  1. CLADRIBINE [Suspect]
     Route: 042

REACTIONS (7)
  - ASCITES [None]
  - B-CELL LYMPHOMA [None]
  - EPSTEIN-BARR VIRUS INFECTION [None]
  - HAIRY CELL LEUKAEMIA [None]
  - LEUKAEMIA RECURRENT [None]
  - PANCYTOPENIA [None]
  - THERAPY NON-RESPONDER [None]
